FAERS Safety Report 6723583-5 (Version None)
Quarter: 2010Q2

REPORT INFORMATION
  Report Type: 
  Country: None (occurrence: None)
  Receive Date: 20100513
  Receipt Date: 20100503
  Transmission Date: 20101027
  Serious: Yes (Hospitalization)
  Sender: FDA-Public Use
  Company Number: CA-JNJFOC-20100402044

PATIENT
  Sex: Female
  Weight: 91 kg

DRUGS (4)
  1. REMICADE [Suspect]
     Indication: ANKYLOSING SPONDYLITIS
     Route: 042
  2. REMICADE [Suspect]
     Dosage: REINITIATED
     Route: 042
  3. REMICADE [Suspect]
     Dosage: WEEKS 0, 2, 6, AND EVERY 8 WEEKS
     Route: 042
  4. TYLENOL-500 [Concomitant]
     Route: 048

REACTIONS (5)
  - ABASIA [None]
  - ARTHROPATHY [None]
  - FALL [None]
  - PAIN [None]
  - PELVIC FRACTURE [None]
